FAERS Safety Report 9508474 (Version 1)
Quarter: 2013Q1

REPORT INFORMATION
  Report Type: Spontaneous
  Country: US (occurrence: None)
  Receive Date: 20130305
  Receipt Date: 20130305
  Transmission Date: 20140127
  Serious: Yes (Other)
  Sender: FDA-Public Use
  Company Number: 163-21880-11011353

PATIENT
  Age: 79 Year
  Sex: Female
  Weight: 53.5 kg

DRUGS (2)
  1. REVLIMID (LENALIDOMIDE) (25 MILLIGRAM, CAPSULES) [Suspect]
     Indication: PLASMA CELL MYELOMA
     Dosage: CAPSULE, 25 MG, AT BEDTIME FOR 21 DAYS OUT OF 28 DAYS, PO
     Dates: start: 20100519, end: 2010
  2. ZYRTEC (CETIRIZINE HYDROCHLORIDE) [Concomitant]

REACTIONS (4)
  - Anaemia [None]
  - Rash pruritic [None]
  - Rash erythematous [None]
  - Diarrhoea [None]
